FAERS Safety Report 4266245-9 (Version None)
Quarter: 2004Q1

REPORT INFORMATION
  Report Type: 
  Country: None (occurrence: None)
  Receive Date: 20040106
  Receipt Date: 20031222
  Transmission Date: 20041129
  Serious: Yes (Hospitalization)
  Sender: FDA-Public Use
  Company Number: 2003126600

PATIENT
  Age: 31 Year
  Sex: Female
  Weight: 60 kg

DRUGS (7)
  1. NEURONTIN [Suspect]
     Indication: ARTHRALGIA
     Dosage: 900 MG (TID), ORAL
     Route: 048
     Dates: start: 20031010, end: 20031110
  2. FLUOXETINE HCL [Concomitant]
  3. TRAMADOL HCL [Concomitant]
  4. TEMAZEPAM [Concomitant]
  5. ALIMEMAZINE TARTRATE (ALIMEMAZINE TARTRATE) [Concomitant]
  6. INDOMETHACIN [Concomitant]
  7. CODEINE PHOSPHATE AND ACETAMINOPHEN [Concomitant]

REACTIONS (8)
  - ABNORMAL BEHAVIOUR [None]
  - DIARRHOEA [None]
  - EUPHORIC MOOD [None]
  - FEELING ABNORMAL [None]
  - JUDGEMENT IMPAIRED [None]
  - NAUSEA [None]
  - OVERDOSE [None]
  - SELF-MEDICATION [None]
